FAERS Safety Report 23312112 (Version 1)
Quarter: 2023Q4

REPORT INFORMATION
  Report Type: Spontaneous
  Country: US (occurrence: US)
  Receive Date: 20231219
  Receipt Date: 20231219
  Transmission Date: 20240109
  Serious: No
  Sender: FDA-Public Use
  Company Number: US-GLENMARK PHARMACEUTICALS-2023GMK084552

PATIENT

DRUGS (1)
  1. CICLOPIROX OLAMINE [Suspect]
     Active Substance: CICLOPIROX OLAMINE
     Indication: Tinea pedis
     Dosage: UNK, QD (CONSISTENTLY USING IT ON A DAILY BASIS FOR APPROXIMATELY A MONTH)
     Route: 061
     Dates: start: 2023

REACTIONS (3)
  - Product dose omission issue [Unknown]
  - Product closure issue [Unknown]
  - Product physical consistency issue [Unknown]

NARRATIVE: CASE EVENT DATE: 20230101
